FAERS Safety Report 6456307-X (Version None)
Quarter: 2009Q4

REPORT INFORMATION
  Report Type: 
  Country: None (occurrence: None)
  Receive Date: 20091120
  Receipt Date: 20081111
  Transmission Date: 20100525
  Serious: Yes (Hospitalization, Other)
  Sender: FDA-Public Use
  Company Number: 2009SP018943

PATIENT
  Age: 46 Year
  Sex: Female
  Weight: 86.1834 kg

DRUGS (5)
  1. NUVARING [Suspect]
     Indication: OVARIAN CYST
     Dates: start: 20040826, end: 20051201
  2. MIDRIN [Concomitant]
  3. ENTEX SOLUTION [Concomitant]
  4. VALTREX [Concomitant]
  5. OXYCODONE HCL [Concomitant]

REACTIONS (9)
  - ACTIVATED PARTIAL THROMBOPLASTIN TIME PROLONGED [None]
  - BLOOD CHOLESTEROL INCREASED [None]
  - ENDOSCOPY ABNORMAL [None]
  - HIATUS HERNIA [None]
  - PALPITATIONS [None]
  - POLYP [None]
  - PULMONARY EMBOLISM [None]
  - PULMONARY THROMBOSIS [None]
  - SYNCOPE [None]
